FAERS Safety Report 7622022-X (Version None)
Quarter: 2011Q3

REPORT INFORMATION
  Report Type: 
  Country: None (occurrence: None)
  Receive Date: 20110720
  Receipt Date: 20101201
  Transmission Date: 20111222
  Serious: Yes (Other)
  Sender: FDA-Public Use
  Company Number: US-BAYER-2010-000901

PATIENT
  Age: 57 Year
  Sex: Male
  Weight: 251 kg

DRUGS (5)
  1. ASPIRIN [Concomitant]
  2. CRESTOR [Concomitant]
  3. FISH OIL [Concomitant]
  4. CHOLESTEROL- AND TRIGLYCERIDE REDUCERS [Concomitant]
  5. ASPIRIN [Suspect]
     Indication: PRODUCT USED FOR UNKNOWN INDICATION
     Dosage: 1 DF, UNK
     Dates: start: 20101201

REACTIONS (3)
  - HAEMATOCHEZIA [None]
  - ABDOMINAL DISCOMFORT [None]
  - ABDOMINAL DISTENSION [None]
